FAERS Safety Report 4799743-X (Version None)
Quarter: 2005Q4

REPORT INFORMATION
  Report Type: 
  Country: None (occurrence: None)
  Receive Date: 20051011
  Receipt Date: 20051011
  Transmission Date: 20060501
  Serious: Yes (Hospitalization)
  Sender: FDA-Public Use
  Company Number: None

PATIENT
  Sex: Female
  Weight: 62.5964 kg

DRUGS (3)
  1. IBUPROFEN [Suspect]
     Indication: PAIN
     Dosage: 600 MG PO [PRIOR TO ADMISSION]
     Route: 048
  2. BIRTH CONTROL PILLS [Concomitant]
  3. BACTRIM [Concomitant]

REACTIONS (1)
  - EYE SWELLING [None]
